FAERS Safety Report 6421603-9 (Version None)
Quarter: 2009Q4

REPORT INFORMATION
  Report Type: 
  Country: None (occurrence: None)
  Receive Date: 20091030
  Receipt Date: 20091020
  Transmission Date: 20100525
  Serious: No
  Sender: FDA-Public Use
  Company Number: US-JNJFOC-20090904787

PATIENT
  Sex: Male

DRUGS (2)
  1. INVEGA [Suspect]
     Indication: BIPOLAR DISORDER
     Route: 048
  2. LEXAPRO [Concomitant]
     Indication: BIPOLAR DISORDER

REACTIONS (2)
  - DIZZINESS [None]
  - SEDATION [None]
